FAERS Safety Report 5910707-2 (Version None)
Quarter: 2008Q4

REPORT INFORMATION
  Report Type: 
  Country: None (occurrence: None)
  Receive Date: 20081006
  Receipt Date: 20081006
  Transmission Date: 20090506
  Serious: Yes (Other)
  Sender: FDA-Public Use
  Company Number: None

PATIENT
  Sex: Male
  Weight: 117.9352 kg

DRUGS (1)
  1. CHANTIX [Suspect]
     Indication: SMOKING CESSATION THERAPY
     Dosage: STANDARD
     Dates: start: 20070713, end: 20071113

REACTIONS (3)
  - ABNORMAL DREAMS [None]
  - DIABETES MELLITUS INADEQUATE CONTROL [None]
  - INTERVERTEBRAL DISC PROTRUSION [None]
